FAERS Safety Report 6909224-2 (Version None)
Quarter: 2010Q3

REPORT INFORMATION
  Report Type: 
  Country: None (occurrence: None)
  Receive Date: 20100716
  Receipt Date: 20100203
  Transmission Date: 20110219
  Serious: Yes (Hospitalization, Other)
  Sender: FDA-Public Use
  Company Number: 2008074511

PATIENT
  Age: 57 Year
  Sex: Female
  Weight: 83.9 kg

DRUGS (1)
  1. CELEBREX [Suspect]
     Indication: ARTHRALGIA
     Dosage: 200 MG, 2X/DAY, ORAL
     Route: 048
     Dates: start: 20020111, end: 20020525

REACTIONS (2)
  - ACUTE MYOCARDIAL INFARCTION [None]
  - ANXIETY [None]
